FAERS Safety Report 10348926 (Version 1)
Quarter: 2014Q3

REPORT INFORMATION
  Report Type: Spontaneous
  Country: US (occurrence: US)
  Receive Date: 20140729
  Receipt Date: 20140729
  Transmission Date: 20150326
  Serious: No
  Sender: FDA-Public Use
  Company Number: US-009507513-1407USA013365

PATIENT
  Sex: Female

DRUGS (1)
  1. COPPERTONE WET N CLEAR SPF 45PLUS [Suspect]
     Active Substance: AVOBENZONE\HOMOSALATE\OCTISALATE\OCTOCRYLENE\OXYBENZONE
     Indication: PRODUCT USED FOR UNKNOWN INDICATION
     Dosage: UNK, UNKNOWN
     Route: 061
     Dates: start: 2014

REACTIONS (2)
  - Expired product administered [Unknown]
  - Sunburn [Unknown]

NARRATIVE: CASE EVENT DATE: 2014
